FAERS Safety Report 12226314 (Version 3)
Quarter: 2016Q2

REPORT INFORMATION
  Report Type: Spontaneous
  Country: JP (occurrence: JP)
  Receive Date: 20160331
  Receipt Date: 20160510
  Transmission Date: 20160815
  Serious: Yes (Other)
  Sender: FDA-Public Use
  Company Number: PHJP2016JP007236

PATIENT
  Age: 35 Year
  Sex: Female

DRUGS (3)
  1. INSULIN [Suspect]
     Active Substance: INSULIN NOS
     Indication: TYPE 1 DIABETES MELLITUS
     Route: 065
  2. HYDRALAZINE [Suspect]
     Active Substance: HYDRALAZINE HYDROCHLORIDE
     Indication: GESTATIONAL HYPERTENSION
     Route: 048
  3. PREDNISOLONE. [Suspect]
     Active Substance: PREDNISOLONE
     Indication: NEPHROTIC SYNDROME
     Dosage: 0.6 MG/KG, QD
     Route: 065

REACTIONS (6)
  - Maternal exposure during pregnancy [Unknown]
  - Premature labour [Unknown]
  - Hypoproteinaemia [Not Recovered/Not Resolved]
  - Premature delivery [Unknown]
  - Nephrotic syndrome [Recovering/Resolving]
  - Oedema [Unknown]
